FAERS Safety Report 7131344-0 (Version None)
Quarter: 2010Q4

REPORT INFORMATION
  Report Type: 
  Country: None (occurrence: None)
  Receive Date: 20101124
  Receipt Date: 20101124
  Transmission Date: 20110411
  Serious: No
  Sender: FDA-Public Use
  Company Number: None

PATIENT
  Age: 50 Year
  Sex: Female

DRUGS (14)
  1. VANCOMYCIN [Suspect]
     Indication: ENDOCARDITIS
     Dosage: 1G EVERY 8 HOURS IV
     Route: 042
     Dates: start: 20101007, end: 20101018
  2. VANCOMYCIN [Suspect]
     Indication: STAPHYLOCOCCAL BACTERAEMIA
     Dosage: 1G EVERY 8 HOURS IV
     Route: 042
     Dates: start: 20101007, end: 20101018
  3. FOLIC ACID [Concomitant]
  4. FUROSEMIDE [Concomitant]
  5. HALOPERIDOL [Concomitant]
  6. HEPARIN SODIUM [Concomitant]
  7. MAGNESIUM SULFATE [Concomitant]
  8. MIDAZOLAM [Concomitant]
  9. MULTI-VITAMIN [Concomitant]
  10. ONDANSETRON [Concomitant]
  11. QUETIAPINE [Concomitant]
  12. THIAMINE [Concomitant]
  13. VENLAFAXINE HCL EXTENDED-RELEASE [Concomitant]
  14. MORPHINE [Concomitant]

REACTIONS (3)
  - DRUG HYPERSENSITIVITY [None]
  - PYREXIA [None]
  - RASH GENERALISED [None]
